APPROVED DRUG PRODUCT: SECOBARBITAL SODIUM
Active Ingredient: SECOBARBITAL SODIUM
Strength: 50MG/ML
Dosage Form/Route: INJECTABLE;INJECTION
Application: A083262 | Product #001
Applicant: WYETH AYERST LABORATORIES
Approved: Approved Prior to Jan 1, 1982 | RLD: No | RS: No | Type: DISCN